FAERS Safety Report 24772289 (Version 1)
Quarter: 2024Q4

REPORT INFORMATION
  Report Type: Spontaneous
  Country: RO (occurrence: RO)
  Receive Date: 20241224
  Receipt Date: 20241224
  Transmission Date: 20250114
  Serious: Yes (Death)
  Sender: SHIONOGI
  Company Number: RO-shionogi-202400004185

PATIENT
  Age: 52 Year

DRUGS (6)
  1. CEFIDEROCOL [Suspect]
     Active Substance: CEFIDEROCOL
     Indication: Pneumonia acinetobacter
  2. CEFIDEROCOL [Suspect]
     Active Substance: CEFIDEROCOL
     Indication: Pulmonary sepsis
  3. COLISTIN [Suspect]
     Active Substance: COLISTIN
     Indication: Pneumonia acinetobacter
  4. COLISTIN [Suspect]
     Active Substance: COLISTIN
     Indication: Pulmonary sepsis
  5. AMIKACIN [Suspect]
     Active Substance: AMIKACIN
     Indication: Pneumonia acinetobacter
  6. AMIKACIN [Suspect]
     Active Substance: AMIKACIN
     Indication: Pulmonary sepsis

REACTIONS (1)
  - Infection [Fatal]
